FAERS Safety Report 23897652 (Version 3)
Quarter: 2024Q2

REPORT INFORMATION
  Report Type: Spontaneous
  Country: US (occurrence: US)
  Receive Date: 20240524
  Receipt Date: 20240624
  Transmission Date: 20240716
  Serious: No
  Sender: FDA-Public Use
  Company Number: US-BIOGEN-2024BI01266148

PATIENT
  Age: 44 Year
  Sex: Male

DRUGS (1)
  1. QALSODY [Suspect]
     Active Substance: TOFERSEN
     Indication: Amyotrophic lateral sclerosis
     Route: 050
     Dates: start: 20231010

REACTIONS (6)
  - Tooth infection [Not Recovered/Not Resolved]
  - Gingivitis [Unknown]
  - Musculoskeletal discomfort [Unknown]
  - Headache [Unknown]
  - Osteitis [Unknown]
  - CSF protein increased [Unknown]

NARRATIVE: CASE EVENT DATE: 20231024
